FAERS Safety Report 12549388 (Version 2)
Quarter: 2017Q1

REPORT INFORMATION
  Report Type: Spontaneous
  Country: US (occurrence: US)
  Receive Date: 20160712
  Receipt Date: 20170117
  Transmission Date: 20170428
  Serious: Yes (Other)
  Sender: FDA-Public Use
  Company Number: US-ALLERGAN-1522140US

PATIENT
  Age: 69 Year
  Sex: Male
  Weight: 73.2 kg

DRUGS (2)
  1. DALVANCE [Suspect]
     Active Substance: DALBAVANCIN
     Indication: CELLULITIS
     Dosage: 1000 MG, SINGLE
     Route: 042
     Dates: start: 20140926, end: 20140926
  2. DALVANCE [Suspect]
     Active Substance: DALBAVANCIN
     Dosage: 500 MG, SINGLE
     Route: 042
     Dates: start: 20141016, end: 20141016

REACTIONS (2)
  - Inappropriate schedule of drug administration [Unknown]
  - Hypersensitivity [Recovered/Resolved]

NARRATIVE: CASE EVENT DATE: 20141016
